FAERS Safety Report 9214610 (Version 3)
Quarter: 2016Q3

REPORT INFORMATION
  Report Type: Report from Study
  Country: IN (occurrence: IN)
  Receive Date: 20130405
  Receipt Date: 20160721
  Transmission Date: 20161109
  Serious: Yes (Hospitalization)
  Sender: FDA-Public Use
  Company Number: PHHY2013IN032250

PATIENT
  Sex: Male

DRUGS (2)
  1. GLIVEC [Suspect]
     Active Substance: IMATINIB MESYLATE
     Dosage: 300 MG, UNK
     Route: 065
  2. GLIVEC [Suspect]
     Active Substance: IMATINIB MESYLATE
     Indication: CHRONIC MYELOID LEUKAEMIA
     Dosage: 400 MG, QD
     Route: 048

REACTIONS (2)
  - Paralysis [Unknown]
  - Cerebrovascular accident [Unknown]
